FAERS Safety Report 11237953 (Version 3)
Quarter: 2015Q3

REPORT INFORMATION
  Report Type: Spontaneous
  Country: GB (occurrence: GB)
  Receive Date: 20150703
  Receipt Date: 20150730
  Transmission Date: 20151125
  Serious: Yes (Other)
  Sender: FDA-Public Use
  Company Number: GB-ALEXION PHARMACEUTICALS INC.-A201502427

PATIENT

DRUGS (2)
  1. SOLIRIS [Suspect]
     Active Substance: ECULIZUMAB
     Indication: TRANSPLANT REJECTION
     Dosage: 900 MG, UNK
     Route: 042
  2. SOLIRIS [Suspect]
     Active Substance: ECULIZUMAB
     Indication: OFF LABEL USE

REACTIONS (2)
  - Renal transplant failure [Unknown]
  - Off label use [Unknown]
